FAERS Safety Report 17278410 (Version 1)
Quarter: 2020Q1

REPORT INFORMATION
  Report Type: Spontaneous
  Country: FR (occurrence: FR)
  Receive Date: 20200116
  Receipt Date: 20200116
  Transmission Date: 20200409
  Serious: Yes (Other)
  Sender: FDA-Public Use
  Company Number: FR-MYLANLABS-2020M1004521

PATIENT
  Age: 48 Year
  Sex: Male
  Weight: 77.5 kg

DRUGS (3)
  1. CITALOPRAM [Suspect]
     Active Substance: CITALOPRAM HYDROBROMIDE
     Indication: DEPRESSION
     Dosage: 40 MILLIGRAM, QD
     Route: 048
  2. RIFADINE                           /00146901/ [Interacting]
     Active Substance: RIFAMPIN
     Indication: NECROTISING FASCIITIS
     Dosage: 1200 MILLIGRAM, QD
     Route: 048
     Dates: start: 20190523, end: 20190823
  3. TERCIAN                            /00759302/ [Concomitant]
     Active Substance: CYAMEMAZINE
     Indication: DEPRESSION
     Dosage: UNK
     Route: 048
     Dates: end: 20190829

REACTIONS (2)
  - Drug interaction [Recovered/Resolved]
  - Depression [Recovering/Resolving]

NARRATIVE: CASE EVENT DATE: 201908
